FAERS Safety Report 8033520-1 (Version None)
Quarter: 2012Q1

REPORT INFORMATION
  Report Type: 
  Country: None (occurrence: None)
  Receive Date: 20120110
  Receipt Date: 20120107
  Transmission Date: 20120608
  Serious: Yes (Other)
  Sender: FDA-Public Use
  Company Number: FI-ROCHE-1028550

PATIENT
  Sex: Female

DRUGS (2)
  1. BENDAMUSTINE [Concomitant]
     Indication: B-CELL LYMPHOMA
  2. MABTHERA [Suspect]
     Indication: B-CELL LYMPHOMA

REACTIONS (1)
  - B-CELL LYMPHOMA RECURRENT [None]
